FAERS Safety Report 5082579-2 (Version None)
Quarter: 2006Q3

REPORT INFORMATION
  Report Type: 
  Country: None (occurrence: None)
  Receive Date: 20060817
  Receipt Date: 20060807
  Transmission Date: 20061208
  Serious: Yes (Other)
  Sender: FDA-Public Use
  Company Number: BE-BRISTOL-MYERS SQUIBB COMPANY-13475744

PATIENT
  Sex: Male

DRUGS (2)
  1. ERBITUX [Suspect]
     Indication: COLORECTAL CANCER
     Route: 050
  2. IRINOTECAN HCL [Concomitant]
     Indication: COLORECTAL CANCER

REACTIONS (2)
  - CONFUSIONAL STATE [None]
  - INFUSION RELATED REACTION [None]
